FAERS Safety Report 10052551 (Version 1)
Quarter: 2014Q2

REPORT INFORMATION
  Report Type: Spontaneous
  Country: IT (occurrence: IT)
  Receive Date: 20140402
  Receipt Date: 20140402
  Transmission Date: 20141212
  Serious: Yes (Other)
  Sender: FDA-Public Use
  Company Number: IT-BAYER-2014-044694

PATIENT
  Age: 74 Year
  Sex: Female

DRUGS (7)
  1. NIFEDIPINE [Suspect]
     Dosage: 30 DF, ONCE
     Route: 048
     Dates: start: 20140120, end: 20140120
  2. COAPROVEL [Suspect]
     Dosage: DAILY DOSE 1 DF
     Route: 048
     Dates: start: 20130121, end: 20140120
  3. NORVASC [Suspect]
     Dosage: DAILY DOSE 1 DF
     Route: 048
     Dates: start: 20130121, end: 20140120
  4. LASIX [Suspect]
     Dosage: 1 DF, PRN
     Route: 048
     Dates: start: 20130121, end: 20140120
  5. RAMIPRIL [Suspect]
     Dosage: DAILY DOSE 2.5 MG
     Route: 048
     Dates: start: 20130121, end: 20140120
  6. METFORMIN [Concomitant]
     Dosage: DAILY DOSE 1000 MG
     Route: 048
  7. LANSOPRAZOLE [Concomitant]
     Dosage: DAILY DOSE 30 MG
     Route: 048

REACTIONS (2)
  - Hypertension [Recovering/Resolving]
  - Drug ineffective [Recovering/Resolving]
